FAERS Safety Report 7633802-9 (Version None)
Quarter: 2011Q3

REPORT INFORMATION
  Report Type: 
  Country: None (occurrence: None)
  Receive Date: 20110725
  Receipt Date: 20110719
  Transmission Date: 20111222
  Serious: Yes (Other)
  Sender: FDA-Public Use
  Company Number: CA-MERCK-1107USA02390

PATIENT
  Age: 3 Year
  Sex: Male
  Weight: 13 kg

DRUGS (6)
  1. SINGULAIR [Suspect]
     Route: 048
  2. OMEGA-3 MARINE TRIGLYCERIDES [Concomitant]
     Route: 065
  3. VITAMIN D (UNSPECIFIED) [Concomitant]
     Route: 065
  4. FLOVENT [Concomitant]
     Route: 055
  5. ELOCON [Concomitant]
     Route: 065
  6. VENTOLIN [Concomitant]
     Route: 055

REACTIONS (6)
  - ALOPECIA [None]
  - INSOMNIA [None]
  - TREMOR [None]
  - ABNORMAL BEHAVIOUR [None]
  - AGGRESSION [None]
  - CRYING [None]
